FAERS Safety Report 26218264 (Version 1)
Quarter: 2025Q4

REPORT INFORMATION
  Report Type: Spontaneous
  Country: CN (occurrence: CN)
  Receive Date: 20251231
  Receipt Date: 20251231
  Transmission Date: 20260118
  Serious: Yes (Other)
  Sender: ROCHE
  Company Number: CN-ROCHE-10000469781

PATIENT
  Age: 6 Year

DRUGS (2)
  1. XOFLUZA [Suspect]
     Active Substance: BALOXAVIR MARBOXIL
     Indication: Influenza
  2. MOTRIN [Concomitant]
     Active Substance: IBUPROFEN

REACTIONS (2)
  - Hyperpyrexia [Unknown]
  - Drug ineffective [Unknown]
